FAERS Safety Report 9804123 (Version 1)
Quarter: 2014Q1

REPORT INFORMATION
  Report Type: Spontaneous
  Country: GB (occurrence: GB)
  Receive Date: 20140108
  Receipt Date: 20140108
  Transmission Date: 20141002
  Serious: Yes (Disabling)
  Sender: FDA-Public Use
  Company Number: GB-PFIZER INC-2014004363

PATIENT
  Age: 48 Year
  Sex: Male
  Weight: 98.8 kg

DRUGS (2)
  1. PREGABALIN [Suspect]
     Indication: BACK PAIN
     Dosage: 450MG DAILY
     Route: 048
     Dates: start: 20120227, end: 20131210
  2. CO-CODAMOL [Concomitant]
     Indication: BACK PAIN
     Dosage: 8/500 (ONGOING)
     Route: 048
     Dates: start: 20100519

REACTIONS (4)
  - Hallucination, visual [Not Recovered/Not Resolved]
  - Depersonalisation [Not Recovered/Not Resolved]
  - Thinking abnormal [Not Recovered/Not Resolved]
  - Self-injurious ideation [Not Recovered/Not Resolved]
